FAERS Safety Report 11830876 (Version 2)
Quarter: 2015Q4

REPORT INFORMATION
  Report Type: Spontaneous
  Country: AT (occurrence: AT)
  Receive Date: 20151214
  Receipt Date: 20151216
  Transmission Date: 20160305
  Serious: Yes (Other)
  Sender: FDA-Public Use
  Company Number: AT-BRISTOL-MYERS SQUIBB COMPANY-2000SUS0597

PATIENT
  Age: 30 Year
  Sex: Female

DRUGS (4)
  1. SUSTIVA [Suspect]
     Active Substance: EFAVIRENZ
     Indication: HIV INFECTION
     Dosage: 600 MG, UNK
     Route: 048
     Dates: start: 19990908, end: 20000509
  2. HYDROXYUREA. [Suspect]
     Active Substance: HYDROXYUREA
     Indication: HIV INFECTION
     Dosage: UNK
     Route: 065
     Dates: start: 19990908, end: 20000509
  3. STAVUDINE. [Suspect]
     Active Substance: STAVUDINE
     Indication: HIV INFECTION
     Dosage: UNK
     Route: 065
     Dates: start: 19990908, end: 20000509
  4. DIDANOSINE. [Suspect]
     Active Substance: DIDANOSINE
     Indication: HIV INFECTION
     Dosage: UNK
     Route: 065
     Dates: start: 19990908, end: 20000509

REACTIONS (2)
  - Abortion induced [Unknown]
  - Pregnancy [Recovered/Resolved]

NARRATIVE: CASE EVENT DATE: 20000501
